FAERS Safety Report 14341911 (Version 1)
Quarter: 2018Q1

REPORT INFORMATION
  Report Type: Report from Study
  Country: IT (occurrence: IT)
  Receive Date: 20180102
  Receipt Date: 20180102
  Transmission Date: 20180509
  Serious: Yes (Hospitalization)
  Sender: FDA-Public Use
  Company Number: IT-ROCHE-1703477

PATIENT
  Age: 71 Year
  Sex: Female

DRUGS (2)
  1. BLINDED PEGPLERANIB [Suspect]
     Active Substance: PEGPLERANIB
     Indication: AGE-RELATED MACULAR DEGENERATION
     Route: 031
     Dates: start: 20141203, end: 20150403
  2. RANIBIZUMAB. [Suspect]
     Active Substance: RANIBIZUMAB
     Indication: AGE-RELATED MACULAR DEGENERATION
     Dosage: MOST RECENT DOSE ON 06/MAR/2015
     Route: 050
     Dates: start: 20141203, end: 20150403

REACTIONS (1)
  - Cerebral haemorrhage [Not Recovered/Not Resolved]

NARRATIVE: CASE EVENT DATE: 20150330
